FAERS Safety Report 6663765-4 (Version None)
Quarter: 2010Q1

REPORT INFORMATION
  Report Type: 
  Country: None (occurrence: None)
  Receive Date: 20100331
  Receipt Date: 20100331
  Transmission Date: 20100710
  Serious: Yes (Death, Life-Threatening, Hospitalization)
  Sender: FDA-Public Use
  Company Number: None

PATIENT
  Age: 62 Year
  Sex: Female

DRUGS (10)
  1. PEMETREXED ELI LILLY [Suspect]
     Indication: LUNG CARCINOMA CELL TYPE UNSPECIFIED STAGE IV
     Dosage: ONCE IV
     Route: 042
     Dates: start: 20100113, end: 20100113
  2. AMLODIPINE [Concomitant]
  3. PANTOPRAZOLE [Concomitant]
  4. ACETAMINOPHEN AND HYDROCODONE BITARTRATE [Concomitant]
  5. ONDANSETRON [Concomitant]
  6. ATENOLOL [Concomitant]
  7. SIMVASTATIN [Concomitant]
  8. ENOXAPARIN SODIUM [Concomitant]
  9. FENTANYL-75 [Concomitant]
  10. POTASSIUM CHLORIDE [Concomitant]

REACTIONS (13)
  - BLOOD PRESSURE SYSTOLIC DECREASED [None]
  - CARDIAC ARREST [None]
  - CHILLS [None]
  - COAGULOPATHY [None]
  - DYSPHAGIA [None]
  - ELECTROMECHANICAL DISSOCIATION [None]
  - FALL [None]
  - HAEMATEMESIS [None]
  - MELAENA [None]
  - OESOPHAGEAL FISTULA [None]
  - OESOPHAGEAL ULCER HAEMORRHAGE [None]
  - RECALL PHENOMENON [None]
  - THROMBOCYTOPENIA [None]
